FAERS Safety Report 10084825 (Version 1)
Quarter: 2014Q2

REPORT INFORMATION
  Report Type: Spontaneous
  Country: GB (occurrence: GB)
  Receive Date: 20140417
  Receipt Date: 20140417
  Transmission Date: 20141212
  Serious: Yes (Disabling)
  Sender: FDA-Public Use
  Company Number: GB-ELI_LILLY_AND_COMPANY-GB201404001553

PATIENT
  Age: 42 Year
  Sex: Female
  Weight: 97 kg

DRUGS (10)
  1. HUMULIN 30% REGULAR, 70% NPH [Suspect]
     Indication: PRODUCT USED FOR UNKNOWN INDICATION
     Dosage: UNK
     Route: 058
     Dates: start: 20140228
  2. DESOGESTREL [Concomitant]
     Dosage: UNK
     Dates: start: 20140228
  3. CLOTRIMAZOLE [Concomitant]
     Dosage: UNK
     Dates: start: 20140131, end: 20140207
  4. CLOTRIMAZOLE [Concomitant]
     Dosage: UNK
     Dates: start: 20140324
  5. METHADONE [Concomitant]
     Dosage: UNK
     Dates: start: 20120615
  6. NITROFURANTOIN [Concomitant]
     Dosage: UNK
     Dates: start: 20140311, end: 20140316
  7. NOVOMIX [Concomitant]
     Dosage: UNK
     Dates: start: 20140318
  8. PAROXETINE [Concomitant]
     Dosage: UNK
     Dates: start: 20131218
  9. TRIMETHOPRIM [Concomitant]
     Dosage: UNK
     Dates: start: 20140131, end: 20140207
  10. TRIMETHOPRIM [Concomitant]
     Dosage: UNK
     Dates: start: 20140307, end: 20140312

REACTIONS (4)
  - Appetite disorder [Recovered/Resolved]
  - Dizziness [Recovered/Resolved]
  - Lethargy [Recovered/Resolved]
  - Asthenia [Recovered/Resolved]
